FAERS Safety Report 20771380 (Version 1)
Quarter: 2022Q2

REPORT INFORMATION
  Report Type: Spontaneous
  Country: US (occurrence: US)
  Receive Date: 20220429
  Receipt Date: 20220429
  Transmission Date: 20220720
  Serious: Yes (Hospitalization)
  Sender: FDA-Public Use
  Company Number: US-MALLINCKRODT-T202202100

PATIENT
  Sex: Male

DRUGS (6)
  1. H.P. ACTHAR [Suspect]
     Active Substance: CORTICOTROPIN
     Indication: Infantile spasms
     Dosage: 0.39 MILLILITER, BID FOR 14 DAYS
     Route: 030
     Dates: start: 202112
  2. H.P. ACTHAR [Suspect]
     Active Substance: CORTICOTROPIN
     Dosage: 0.16 MILLILITER, QD FOR 3 DAYS
     Route: 065
  3. H.P. ACTHAR [Suspect]
     Active Substance: CORTICOTROPIN
     Dosage: 0.08 MILLILITER, QD FOR 3 DAYS
     Route: 065
  4. H.P. ACTHAR [Suspect]
     Active Substance: CORTICOTROPIN
     Dosage: 0.05 MILLILITER, QD FOR 3 DAYS
     Route: 065
  5. H.P. ACTHAR [Suspect]
     Active Substance: CORTICOTROPIN
     Dosage: 0.05 MILLILITER EVERY OTHER DAY FOR 3
     Route: 065
  6. VIGABATRIN [Concomitant]
     Active Substance: VIGABATRIN
     Indication: Product used for unknown indication
     Dosage: MIX 2 PACKETS IN 20 ML WATER (15 ML ORALLY DAILY IN THE MORNING AND 20 ML AT BEDTIME)
     Route: 048

REACTIONS (1)
  - Hospitalisation [Unknown]
